FAERS Safety Report 15316561 (Version 1)
Quarter: 2018Q3

REPORT INFORMATION
  Report Type: Spontaneous
  Country: US (occurrence: US)
  Receive Date: 20180816
  Receipt Date: 20180816
  Transmission Date: 20181010
  Serious: No
  Sender: FDA-Public Use
  Company Number: None

PATIENT
  Age: 72 Year
  Sex: Male

DRUGS (4)
  1. PEPCID [Concomitant]
     Active Substance: FAMOTIDINE
  2. PROPRANOLOL [Concomitant]
     Active Substance: PROPRANOLOL HYDROCHLORIDE
  3. PREDISONE [Concomitant]
     Active Substance: PREDNISONE
  4. RYDAPT [Suspect]
     Active Substance: MIDOSTAURIN

REACTIONS (2)
  - Night sweats [None]
  - Nausea [None]

NARRATIVE: CASE EVENT DATE: 20180816
